FAERS Safety Report 13072991 (Version 5)
Quarter: 2017Q2

REPORT INFORMATION
  Report Type: Report from Study
  Country: US (occurrence: US)
  Receive Date: 20161229
  Receipt Date: 20170411
  Transmission Date: 20170830
  Serious: Yes (Life-Threatening, Hospitalization, Other)
  Sender: FDA-Public Use
  Company Number: US-CORCEPT THERAPEUTICS INC.-US-2016CRT000820

PATIENT

DRUGS (3)
  1. KORLYM [Suspect]
     Active Substance: MIFEPRISTONE
     Dosage: 600 MG, QD
     Route: 048
     Dates: start: 201502, end: 201504
  2. KORLYM [Suspect]
     Active Substance: MIFEPRISTONE
     Indication: HYPERADRENOCORTICISM
     Dosage: 300 MG, QD
     Route: 048
     Dates: start: 201501, end: 201502
  3. KORLYM [Suspect]
     Active Substance: MIFEPRISTONE
     Dosage: 900 MG, QD
     Route: 048
     Dates: start: 201504

REACTIONS (12)
  - Depression suicidal [Unknown]
  - Vaginal haemorrhage [Not Recovered/Not Resolved]
  - Pneumonia [Recovered/Resolved]
  - Bronchitis [Unknown]
  - Subcutaneous abscess [Recovering/Resolving]
  - Blood glucose increased [Not Recovered/Not Resolved]
  - Suicide attempt [Recovered/Resolved]
  - Fungal infection [Not Recovered/Not Resolved]
  - Blood oestrogen increased [Unknown]
  - Blood potassium decreased [Recovering/Resolving]
  - Uterine enlargement [Not Recovered/Not Resolved]
  - Blood thyroid stimulating hormone increased [Not Recovered/Not Resolved]

NARRATIVE: CASE EVENT DATE: 201611
